FAERS Safety Report 4825234-3 (Version None)
Quarter: 2005Q4

REPORT INFORMATION
  Report Type: 
  Country: None (occurrence: None)
  Receive Date: 20051109
  Receipt Date: 20051103
  Transmission Date: 20060501
  Serious: Yes (Other)
  Sender: FDA-Public Use
  Company Number: GBWYE114404NOV05

PATIENT
  Age: 80 Year
  Sex: Female

DRUGS (4)
  1. EFFEXOR XR [Suspect]
     Dosage: 225 MG
  2. ADALAT [Concomitant]
  3. INSULIN [Concomitant]
  4. CLONAZEPAM [Concomitant]

REACTIONS (2)
  - BLOOD PRESSURE INCREASED [None]
  - WRONG DRUG ADMINISTERED [None]
